FAERS Safety Report 9484389 (Version 2)
Quarter: 2013Q3

REPORT INFORMATION
  Report Type: Spontaneous
  Country: US (occurrence: US)
  Receive Date: 20130828
  Receipt Date: 20130828
  Transmission Date: 20140515
  Serious: Yes (Other)
  Sender: FDA-Public Use
  Company Number: US-AMGEN-KDL395677

PATIENT
  Age: 27 Year
  Sex: Female
  Weight: 64.9 kg

DRUGS (4)
  1. ENBREL [Suspect]
     Indication: RHEUMATOID ARTHRITIS
     Dosage: 50 MG, QWK
     Route: 058
     Dates: start: 20080101
  2. SULFASALAZINE [Concomitant]
     Dosage: 500 MG, QID
     Dates: start: 200604
  3. HYDROCODONE BITARTRATE + ACETAMINOPHEN [Concomitant]
     Dosage: UNK UNK, PRN
     Route: 048
     Dates: start: 200901, end: 200908
  4. PRENATAL VITAMINS [Concomitant]
     Dosage: UNK UNK, QD
     Route: 048
     Dates: start: 200810, end: 200908

REACTIONS (2)
  - Ultrasound antenatal screen abnormal [Unknown]
  - Rheumatoid arthritis [Recovered/Resolved]
